FAERS Safety Report 5563628-1 (Version None)
Quarter: 2007Q4

REPORT INFORMATION
  Report Type: 
  Country: None (occurrence: None)
  Receive Date: 20071217
  Receipt Date: 20071206
  Transmission Date: 20080405
  Serious: Yes (Other)
  Sender: FDA-Public Use
  Company Number: US-ELI_LILLY_AND_COMPANY-US200711003390

PATIENT
  Age: 44 Year
  Sex: Female

DRUGS (3)
  1. EVISTA [Suspect]
     Indication: OSTEOPOROSIS
     Dosage: 60 MG, UNK
     Dates: start: 20040101
  2. ERGOCALCIFEROL (VITAMIN D) [Concomitant]
  3. CALCIUM CARBONATE [Concomitant]

REACTIONS (2)
  - MASTECTOMY [None]
  - ULCER [None]
